FAERS Safety Report 19724421 (Version 2)
Quarter: 2021Q3

REPORT INFORMATION
  Report Type: Spontaneous
  Country: GB (occurrence: GB)
  Receive Date: 20210820
  Receipt Date: 20210920
  Transmission Date: 20211014
  Serious: Yes (Hospitalization)
  Sender: FDA-Public Use
  Company Number: GB-TEVA-2021-GB-1943539

PATIENT
  Sex: Female

DRUGS (2)
  1. LIOTHYRONINE [Suspect]
     Active Substance: LIOTHYRONINE
     Route: 065
  2. LEVOTHYROXINE. [Suspect]
     Active Substance: LEVOTHYROXINE
     Route: 065

REACTIONS (7)
  - Vomiting [Unknown]
  - Abnormal loss of weight [Unknown]
  - Cardiac fibrillation [Unknown]
  - Fluid retention [Unknown]
  - Seizure [Unknown]
  - Diarrhoea [Unknown]
  - Dry skin [Unknown]
